FAERS Safety Report 9322898 (Version 2)
Quarter: 2013Q2

REPORT INFORMATION
  Report Type: Report from Study
  Country: AR (occurrence: AR)
  Receive Date: 20130602
  Receipt Date: 20130619
  Transmission Date: 20140414
  Serious: Yes (Other)
  Sender: FDA-Public Use
  Company Number: PHHY2013AR055187

PATIENT
  Sex: Female

DRUGS (2)
  1. GALVUS [Suspect]
     Indication: DIABETES MELLITUS
     Dosage: 50 MG, BID
     Route: 048
     Dates: start: 201302
  2. EXFORGE [Suspect]
     Indication: HYPERTENSION
     Dosage: 1 DF(160 MG OF VALS/5 MG OF AMLO), BID
     Route: 048
     Dates: start: 201305

REACTIONS (2)
  - Blood glucose increased [Unknown]
  - Vomiting [Unknown]
